FAERS Safety Report 25717566 (Version 1)
Quarter: 2025Q3

REPORT INFORMATION
  Report Type: Spontaneous
  Country: US (occurrence: US)
  Receive Date: 20250822
  Receipt Date: 20250822
  Transmission Date: 20251020
  Serious: No
  Sender: AMGEN
  Company Number: US-AMGEN-USASP2025163603

PATIENT

DRUGS (1)
  1. REPATHA [Suspect]
     Active Substance: EVOLOCUMAB
     Indication: Product used for unknown indication
     Route: 065

REACTIONS (6)
  - Rhinorrhoea [Unknown]
  - Fatigue [Unknown]
  - Constipation [Unknown]
  - Food craving [Unknown]
  - Myalgia [Unknown]
  - Abdominal distension [Unknown]
